FAERS Safety Report 9364276 (Version 1)
Quarter: 2013Q2

REPORT INFORMATION
  Report Type: Spontaneous
  Country: FR (occurrence: FR)
  Receive Date: 20130624
  Receipt Date: 20130624
  Transmission Date: 20140414
  Serious: Yes (Hospitalization)
  Sender: FDA-Public Use
  Company Number: FR-TEVA-414472ISR

PATIENT
  Age: 69 Year
  Sex: Male

DRUGS (4)
  1. FUROSEMIDE TEVA 40 MG [Suspect]
     Dosage: 40 MILLIGRAM DAILY;
     Route: 048
  2. ALLOPURINOL [Suspect]
  3. METFORMINE [Concomitant]
  4. SIMVASTATINE [Concomitant]

REACTIONS (1)
  - Acute pulmonary oedema [Unknown]
